FAERS Safety Report 9732116 (Version 2)
Quarter: 2013Q4

REPORT INFORMATION
  Report Type: Report from Study
  Country: GB (occurrence: GB)
  Receive Date: 20131205
  Receipt Date: 20131205
  Transmission Date: 20140711
  Serious: Yes (Hospitalization, Congenital Anomaly, Other)
  Sender: FDA-Public Use
  Company Number: GB-ASTELLAS-2013US008504

PATIENT
  Age: 11 Month
  Sex: Male
  Weight: 12 kg

DRUGS (8)
  1. TACROLIMUS OINTMENT [Suspect]
     Indication: DERMATITIS ATOPIC
     Dosage: 0.03 %, BID
     Route: 061
     Dates: start: 20100615
  2. TACROLIMUS OINTMENT [Suspect]
     Dosage: ONCE DAILY, TWICE WEEKLY
     Route: 061
     Dates: start: 20100615
  3. EPADERM [Concomitant]
     Indication: ECZEMA
     Dosage: UNK
     Route: 065
     Dates: start: 20100627
  4. HYDROCORTISONE [Concomitant]
     Indication: ECZEMA
     Dosage: 1 %, BID
     Route: 061
     Dates: start: 20100627
  5. BETAMETHASONE [Concomitant]
     Indication: DERMATITIS ATOPIC
     Dosage: UNK
     Route: 061
  6. FLUTICASONE [Concomitant]
     Indication: DERMATITIS ATOPIC
     Dosage: UNK
     Route: 061
  7. DIPHENHYDRAMINE [Concomitant]
     Indication: DERMATITIS ATOPIC
     Dosage: UNK
     Route: 065
  8. HYDROXYZINE [Concomitant]
     Indication: DERMATITIS ATOPIC
     Dosage: UNK
     Route: 065

REACTIONS (3)
  - Off label use [Unknown]
  - Surgery [Unknown]
  - Sebaceous naevus [Recovered/Resolved]
